FAERS Safety Report 16953393 (Version 1)
Quarter: 2019Q4

REPORT INFORMATION
  Report Type: Spontaneous
  Country: US (occurrence: US)
  Receive Date: 20191023
  Receipt Date: 20191023
  Transmission Date: 20200122
  Serious: Yes (Death, Other)
  Sender: FDA-Public Use
  Company Number: US-INCYTE CORPORATION-2019IN010471

PATIENT

DRUGS (1)
  1. JAKAFI [Suspect]
     Active Substance: RUXOLITINIB
     Indication: ANTIPHOSPHOLIPID SYNDROME
     Dosage: 15 MILLIGRAM, BID
     Route: 048

REACTIONS (2)
  - Death [Fatal]
  - Off label use [Unknown]
